FAERS Safety Report 4693381-5 (Version None)
Quarter: 2005Q2

REPORT INFORMATION
  Report Type: 
  Country: None (occurrence: None)
  Receive Date: 20050615
  Receipt Date: 20050607
  Transmission Date: 20051028
  Serious: Yes (Hospitalization, Other)
  Sender: FDA-Public Use
  Company Number: 2005071253

PATIENT
  Age: 50 Year
  Sex: Female

DRUGS (8)
  1. ARTHROTEC [Suspect]
     Indication: ARTHRITIS
     Dosage: ORAL
     Route: 048
     Dates: start: 20040101
  2. PRINZIDE [Concomitant]
  3. TOLTERODINE TARTRATE [Concomitant]
  4. ESOMEPRAZOLE (ESOMEPRAZOLE) [Concomitant]
  5. PROPRANOLOL [Concomitant]
  6. VENLAFAXINE HCL [Concomitant]
  7. METOCLOPRAMIDE [Concomitant]
  8. ZOLPIDEM TARTRATE [Concomitant]

REACTIONS (9)
  - BACK PAIN [None]
  - BUNDLE BRANCH BLOCK LEFT [None]
  - CARDIAC DISORDER [None]
  - CARDIAC STRESS TEST ABNORMAL [None]
  - CYST [None]
  - HYPOAESTHESIA [None]
  - INTERVERTEBRAL DISC PROTRUSION [None]
  - PAIN [None]
  - PARAESTHESIA [None]
